FAERS Safety Report 4962000-2 (Version None)
Quarter: 2006Q2

REPORT INFORMATION
  Report Type: 
  Country: None (occurrence: None)
  Receive Date: 20060404
  Receipt Date: 20051102
  Transmission Date: 20061013
  Serious: Yes (Disabling, Other)
  Sender: FDA-Public Use
  Company Number: US-MERCK-0511USA00639

PATIENT
  Sex: Female
  Weight: 66 kg

DRUGS (7)
  1. VIOXX [Suspect]
     Indication: OSTEOPOROSIS
     Route: 048
     Dates: start: 20000202, end: 20040601
  2. VIOXX [Suspect]
     Route: 048
     Dates: start: 20000202, end: 20040601
  3. VIOXX [Suspect]
     Route: 048
     Dates: start: 20000202, end: 20040601
  4. VIOXX [Suspect]
     Indication: INTERVERTEBRAL DISC DEGENERATION
     Route: 048
     Dates: start: 20000202, end: 20040601
  5. VIOXX [Suspect]
     Route: 048
     Dates: start: 20000202, end: 20040601
  6. VIOXX [Suspect]
     Route: 048
     Dates: start: 20000202, end: 20040601
  7. PREMPRO [Concomitant]
     Indication: HORMONE REPLACEMENT THERAPY
     Route: 048
     Dates: start: 19860101, end: 20040101

REACTIONS (8)
  - BACK PAIN [None]
  - CEREBROVASCULAR ACCIDENT [None]
  - DEPRESSION [None]
  - GASTROOESOPHAGEAL REFLUX DISEASE [None]
  - JOINT SWELLING [None]
  - MUSCLE SPASMS [None]
  - OEDEMA PERIPHERAL [None]
  - OSTEOARTHRITIS [None]
